FAERS Safety Report 20670191 (Version 2)
Quarter: 2022Q2

REPORT INFORMATION
  Report Type: Report from Study
  Country: CA (occurrence: CA)
  Receive Date: 20220404
  Receipt Date: 20220407
  Transmission Date: 20220721
  Serious: Yes (Hospitalization)
  Sender: FDA-Public Use
  Company Number: CA-Taiho Oncology Inc-EU-2022-00871

PATIENT
  Age: 56 Year
  Sex: Female

DRUGS (9)
  1. LONSURF [Suspect]
     Active Substance: TIPIRACIL HYDROCHLORIDE\TRIFLURIDINE
     Indication: Colorectal cancer metastatic
     Dosage: CYCLE, DOSE AND FREQUENCY  UNKNOWN
     Route: 048
     Dates: start: 20220328, end: 20220331
  2. DULOXETINE [Concomitant]
     Active Substance: DULOXETINE
  3. PANTOPRAZOLE SODIUM [Concomitant]
     Active Substance: PANTOPRAZOLE SODIUM
  4. IPG RANITIDINE [Concomitant]
  5. DEXAMETHASONE [Concomitant]
     Active Substance: DEXAMETHASONE
  6. HYDROMORPHONE [Concomitant]
     Active Substance: HYDROMORPHONE
  7. PROCHLORPERAZINE [Concomitant]
     Active Substance: PROCHLORPERAZINE
  8. LORAZEPAM [Concomitant]
     Active Substance: LORAZEPAM
  9. TEVA LOPERAMIDE [Concomitant]

REACTIONS (1)
  - Disease progression [Recovered/Resolved]
